FAERS Safety Report 6588888-X (Version None)
Quarter: 2010Q1

REPORT INFORMATION
  Report Type: 
  Country: None (occurrence: None)
  Receive Date: 20100218
  Receipt Date: 20100211
  Transmission Date: 20100710
  Serious: Yes (Hospitalization)
  Sender: FDA-Public Use
  Company Number: B0634336A

PATIENT
  Sex: Male

DRUGS (3)
  1. IMIGRAN AUTOINJECTOR [Suspect]
     Indication: CLUSTER HEADACHE
     Dosage: 8.4MG THREE TIMES PER DAY
     Route: 058
     Dates: start: 20091117, end: 20091117
  2. INDOMETHACIN [Concomitant]
     Indication: CLUSTER HEADACHE
     Dosage: 50MG PER DAY
     Route: 048
     Dates: start: 20091117, end: 20091117
  3. VERAPAMIL [Concomitant]
     Indication: CLUSTER HEADACHE
     Dosage: 80MG PER DAY
     Route: 048

REACTIONS (2)
  - CHEST PAIN [None]
  - OVERDOSE [None]
